FAERS Safety Report 5216853-3 (Version None)
Quarter: 2007Q1

REPORT INFORMATION
  Report Type: 
  Country: None (occurrence: None)
  Receive Date: 20070119
  Receipt Date: 20070108
  Transmission Date: 20070707
  Serious: Yes (Hospitalization)
  Sender: FDA-Public Use
  Company Number: 009775

PATIENT
  Age: 36 Year
  Sex: Female
  Weight: 136.1 kg

DRUGS (5)
  1. JOLESSA [Suspect]
     Indication: ORAL CONTRACEPTION
     Dosage: 1 TABLET, QD, ORAL
     Route: 048
     Dates: start: 20060801, end: 20061216
  2. ATENOLOL [Concomitant]
  3. XANAX XR [Concomitant]
  4. PRILOSEC [Concomitant]
  5. AMBIEN [Concomitant]

REACTIONS (10)
  - ARTHRALGIA [None]
  - CARTILAGE INJURY [None]
  - DEEP VEIN THROMBOSIS [None]
  - FALL [None]
  - JOINT SPRAIN [None]
  - LIGAMENT INJURY [None]
  - LIGAMENT RUPTURE [None]
  - LUNG NEOPLASM [None]
  - MENISCUS LESION [None]
  - PULMONARY EMBOLISM [None]
